FAERS Safety Report 5230049-0 (Version None)
Quarter: 2007Q1

REPORT INFORMATION
  Report Type: 
  Country: None (occurrence: None)
  Receive Date: 20070206
  Receipt Date: 20061004
  Transmission Date: 20070707
  Serious: No
  Sender: FDA-Public Use
  Company Number: US-GLAXOSMITHKLINE-A0622495A

PATIENT
  Sex: Female

DRUGS (7)
  1. PAROXETINE HCL [Suspect]
     Indication: DEPRESSION
     Route: 048
     Dates: start: 20050101
  2. UNKNOWN MEDICATION [Concomitant]
  3. REMINYL [Concomitant]
  4. VITAMINS [Concomitant]
  5. HORMONE REPLACEMENT THERAPY [Concomitant]
  6. LIPITOR [Concomitant]
  7. CALCIUM [Concomitant]

REACTIONS (1)
  - CRYING [None]
